FAERS Safety Report 4856797-X (Version None)
Quarter: 2005Q4

REPORT INFORMATION
  Report Type: 
  Country: None (occurrence: None)
  Receive Date: 20051219
  Receipt Date: 20050125
  Transmission Date: 20060501
  Serious: No
  Sender: FDA-Public Use
  Company Number: US-GLAXOSMITHKLINE-A0542132A

PATIENT
  Age: 40 Year
  Sex: Female

DRUGS (2)
  1. NICODERM CQ [Suspect]
     Dates: start: 20050117, end: 20050124
  2. NICODERM CQ [Suspect]
     Dates: start: 20050125, end: 20050125

REACTIONS (5)
  - CHEILITIS [None]
  - HYPERSENSITIVITY [None]
  - NAUSEA [None]
  - SWELLING FACE [None]
  - TONGUE ULCERATION [None]
